FAERS Safety Report 9121907 (Version 1)
Quarter: 2013Q1

REPORT INFORMATION
  Report Type: Spontaneous
  Country: US (occurrence: US)
  Receive Date: 20130114
  Receipt Date: 20130114
  Transmission Date: 20140127
  Serious: No
  Sender: FDA-Public Use
  Company Number: US-PFIZER INC-2013011530

PATIENT
  Age: 77 Year
  Sex: Female
  Weight: 70.3 kg

DRUGS (1)
  1. MEDROL [Suspect]
     Indication: POLYMYALGIA RHEUMATICA
     Dosage: 4 MG, 1X/DAY
     Route: 048
     Dates: start: 201010

REACTIONS (5)
  - Muscle atrophy [Unknown]
  - Cutis laxa [Unknown]
  - Weight decreased [Unknown]
  - Asthenia [Unknown]
  - Contusion [Unknown]
